FAERS Safety Report 14679750 (Version 1)
Quarter: 2018Q1

REPORT INFORMATION
  Report Type: Spontaneous
  Country: FR (occurrence: FR)
  Receive Date: 20180326
  Receipt Date: 20180326
  Transmission Date: 20180509
  Serious: Yes (Death)
  Sender: FDA-Public Use
  Company Number: FR-LANNETT COMPANY, INC.-FR-2018LAN000565

PATIENT
  Age: 31 Year
  Sex: Female

DRUGS (4)
  1. EPHEDRINE. [Concomitant]
     Active Substance: EPHEDRINE
     Indication: PROPHYLAXIS
     Dosage: MACROMOLECULES INFUSION OF 2 AMPOULES
  2. MORPHINE SULFATE. [Suspect]
     Active Substance: MORPHINE SULFATE
     Indication: SPINAL ANAESTHESIA
     Dosage: UNK
     Route: 008
  3. SUFENTANIL [Suspect]
     Active Substance: SUFENTANIL
     Indication: SPINAL ANAESTHESIA
     Dosage: UNK
     Route: 008
  4. BUPIVACAINE. [Suspect]
     Active Substance: BUPIVACAINE
     Indication: SPINAL ANAESTHESIA
     Dosage: 10 MG, UNK
     Route: 008

REACTIONS (6)
  - Anaesthetic complication cardiac [Fatal]
  - Cardiac arrest [Fatal]
  - Bradycardia [Fatal]
  - Pulseless electrical activity [Fatal]
  - Hypertension [Fatal]
  - Ventricular tachycardia [Fatal]
